FAERS Safety Report 16979469 (Version 1)
Quarter: 2019Q4

REPORT INFORMATION
  Report Type: Spontaneous
  Country: FR (occurrence: FR)
  Receive Date: 20191031
  Receipt Date: 20191031
  Transmission Date: 20200122
  Serious: Yes (Hospitalization)
  Sender: FDA-Public Use
  Company Number: FR-PFIZER INC-2019463808

PATIENT
  Age: 22 Year
  Sex: Female

DRUGS (5)
  1. ATARAX [Suspect]
     Active Substance: HYDROXYZINE HYDROCHLORIDE
     Dosage: UNSPECIFIED
     Route: 048
     Dates: start: 20190210, end: 20190210
  2. ALCOHOL. [Suspect]
     Active Substance: ALCOHOL
     Indication: ALCOHOL USE
     Dosage: UNSPECIFIED
     Route: 065
  3. XANAX [Suspect]
     Active Substance: ALPRAZOLAM
     Dosage: UNSPECIFIED
     Route: 048
     Dates: start: 20190210, end: 20190210
  4. CANNABIS [Suspect]
     Active Substance: CANNABIS SATIVA SUBSP. INDICA TOP
     Indication: DRUG ABUSE
     Dosage: UNSPECIFIED
     Route: 055
  5. TERCIAN [CYAMEMAZINE TARTRATE] [Suspect]
     Active Substance: CYAMEMAZINE
     Dosage: UNSPECIFIED
     Route: 048
     Dates: start: 20190210, end: 20190210

REACTIONS (3)
  - Drug abuse [Not Recovered/Not Resolved]
  - Chest pain [Recovered/Resolved]
  - Brief psychotic disorder with marked stressors [Not Recovered/Not Resolved]

NARRATIVE: CASE EVENT DATE: 2011
